FAERS Safety Report 10208592 (Version 1)
Quarter: 2014Q2

REPORT INFORMATION
  Report Type: Spontaneous
  Country: US (occurrence: US)
  Receive Date: 20140530
  Receipt Date: 20140530
  Transmission Date: 20141212
  Serious: Yes (Other)
  Sender: FDA-Public Use
  Company Number: US-NAPPMUNDI-USA-2013-0104300

PATIENT
  Age: 70 Year
  Sex: Male

DRUGS (2)
  1. MS CONTIN TABLETS [Suspect]
     Indication: PAIN
     Dosage: 120 MG, Q24H
     Route: 048
  2. MORPHINE SULFATE (SIMILAR TO NDA 19-516) [Suspect]
     Indication: PAIN
     Dosage: UNK, PRN
     Route: 048

REACTIONS (5)
  - Overdose [Recovered/Resolved]
  - Depressed level of consciousness [Recovered/Resolved]
  - Screaming [Recovered/Resolved]
  - Blood pressure decreased [Unknown]
  - Tremor [Recovered/Resolved]
